FAERS Safety Report 5453090-1 (Version None)
Quarter: 2007Q3

REPORT INFORMATION
  Report Type: 
  Country: None (occurrence: None)
  Receive Date: 20070914
  Receipt Date: 20070904
  Transmission Date: 20080115
  Serious: Yes (Hospitalization, Other)
  Sender: FDA-Public Use
  Company Number: AU-PFIZER INC-2007059817

PATIENT
  Sex: Male
  Weight: 70 kg

DRUGS (5)
  1. SUTENT [Suspect]
     Dosage: DAILY DOSE:50MG
     Route: 048
     Dates: start: 20070424, end: 20070503
  2. NORVASC [Concomitant]
  3. LOPRESSOR [Concomitant]
  4. MONOPLUS [Concomitant]
  5. DIAMICRON [Concomitant]

REACTIONS (2)
  - ANGINA PECTORIS [None]
  - CORONARY ARTERY DISEASE [None]
